FAERS Safety Report 5502048-2 (Version None)
Quarter: 2007Q4

REPORT INFORMATION
  Report Type: 
  Country: None (occurrence: None)
  Receive Date: 20071030
  Receipt Date: 20070412
  Transmission Date: 20080405
  Serious: No
  Sender: FDA-Public Use
  Company Number: A0647026A

PATIENT
  Age: 52 Year
  Sex: Female

DRUGS (9)
  1. IMITREX [Suspect]
     Indication: MIGRAINE
     Route: 045
     Dates: start: 20060801
  2. SINGULAIR [Concomitant]
  3. CLARITIN [Concomitant]
  4. FLONASE [Concomitant]
  5. BLOOD PRESSURE MEDICATION [Concomitant]
  6. ESTROGENS [Concomitant]
  7. BUTALBITAL [Concomitant]
  8. TYLENOL (CAPLET) [Concomitant]
  9. MIDRIN [Concomitant]

REACTIONS (2)
  - HEADACHE [None]
  - SOMNOLENCE [None]
